FAERS Safety Report 7543580-X (Version None)
Quarter: 2011Q2

REPORT INFORMATION
  Report Type: 
  Country: None (occurrence: None)
  Receive Date: 20110613
  Receipt Date: 20020904
  Transmission Date: 20111010
  Serious: Yes (Life-Threatening, Other)
  Sender: FDA-Public Use
  Company Number: PHFR2002GB02709

PATIENT
  Sex: Male

DRUGS (2)
  1. CLOZAPINE [Suspect]
     Dates: start: 20020812
  2. CLOZAPINE [Suspect]
     Indication: PARKINSON'S DISEASE
     Dosage: 25 MG, QD
     Route: 048
     Dates: start: 20020701

REACTIONS (4)
  - ATRIAL FIBRILLATION [None]
  - LOWER RESPIRATORY TRACT INFECTION [None]
  - IMMOBILE [None]
  - PULMONARY EMBOLISM [None]
